FAERS Safety Report 10931173 (Version 1)
Quarter: 2015Q1

REPORT INFORMATION
  Report Type: Spontaneous
  Country: FR (occurrence: None)
  Receive Date: 20150317
  Receipt Date: 20150317
  Transmission Date: 20150721
  Serious: Yes (Hospitalization)
  Sender: FDA-Public Use
  Company Number: IPC201503-000133

PATIENT
  Age: 43 Year
  Sex: Female

DRUGS (3)
  1. ACETAMINOPHEN (ACETAMINOPHEN) (ACETAMINOPHEN) [Suspect]
     Active Substance: ACETAMINOPHEN
  2. ALCOHOL (ETHANOL) [Concomitant]
     Active Substance: ALCOHOL
  3. PROPRANOLOL HYDROCHLORIDE (PROPRANOLOL HYDROCHLORIDE) (PROPRANOLOL HYDROCHLORIDE) [Suspect]
     Active Substance: PROPRANOLOL HYDROCHLORIDE

REACTIONS (9)
  - Hypotension [None]
  - Toxicity to various agents [None]
  - Alanine aminotransferase increased [None]
  - Respiratory depression [None]
  - Bradycardia [None]
  - Somnolence [None]
  - Aspartate aminotransferase increased [None]
  - Confusional state [None]
  - Hepatic function abnormal [None]
